FAERS Safety Report 20034719 (Version 1)
Quarter: 2021Q4

REPORT INFORMATION
  Report Type: Report from Study
  Country: CA (occurrence: CA)
  Receive Date: 20211104
  Receipt Date: 20211104
  Transmission Date: 20220303
  Serious: Yes (Hospitalization)
  Sender: FDA-Public Use
  Company Number: CA-JNJFOC-20211102338

PATIENT
  Sex: Male
  Weight: 79.5 kg

DRUGS (4)
  1. SIMPONI [Suspect]
     Active Substance: GOLIMUMAB
     Indication: Psoriasis
     Route: 058
     Dates: start: 20060221, end: 20061102
  2. IXEKIZUMAB [Suspect]
     Active Substance: IXEKIZUMAB
     Dates: start: 20210705
  3. ADALIMUMAB [Concomitant]
     Active Substance: ADALIMUMAB
     Dates: start: 201006, end: 201107
  4. ETANERCEPT [Concomitant]
     Active Substance: ETANERCEPT
     Dates: start: 2011, end: 20210518

REACTIONS (1)
  - Hepatitis B [Not Recovered/Not Resolved]

NARRATIVE: CASE EVENT DATE: 20210901
